FAERS Safety Report 9963662 (Version 1)
Quarter: 2014Q1

REPORT INFORMATION
  Report Type: Report from Study
  Country: US (occurrence: US)
  Receive Date: 20140305
  Receipt Date: 20140305
  Transmission Date: 20141002
  Serious: No
  Sender: FDA-Public Use
  Company Number: US-ABBVIE-13P-163-1116933-00

PATIENT
  Age: 66 Year
  Sex: Female

DRUGS (9)
  1. HUMIRA [Suspect]
     Indication: CROHN^S DISEASE
     Dosage: LOADING DOSE
     Dates: start: 20130626
  2. PREDNISONE [Concomitant]
     Indication: PRODUCT USED FOR UNKNOWN INDICATION
     Dosage: IN MORNING AND BEDTIME
  3. ATENOLOL [Concomitant]
     Indication: MIGRAINE
  4. LISINOPRIL [Concomitant]
     Indication: DIABETES MELLITUS
  5. PROZAC [Concomitant]
     Indication: DEPRESSION
  6. POTASSIUM [Concomitant]
     Indication: MINERAL SUPPLEMENTATION
  7. GLIPIZIDE [Concomitant]
     Indication: DIABETES MELLITUS
  8. ZINC [Concomitant]
     Indication: MINERAL SUPPLEMENTATION
  9. VIOXX [Concomitant]
     Indication: PAIN

REACTIONS (3)
  - Diarrhoea [Not Recovered/Not Resolved]
  - Headache [Not Recovered/Not Resolved]
  - Muscle spasms [Not Recovered/Not Resolved]
